FAERS Safety Report 9366033 (Version 1)
Quarter: 2013Q2

REPORT INFORMATION
  Report Type: Spontaneous
  Country: GB (occurrence: GB)
  Receive Date: 20130625
  Receipt Date: 20130625
  Transmission Date: 20140414
  Serious: Yes (Life-Threatening, Hospitalization)
  Sender: FDA-Public Use
  Company Number: GB-NOVOPROD-343091

PATIENT
  Age: 42 Year
  Sex: Female
  Weight: 94.1 kg

DRUGS (12)
  1. VICTOZA [Suspect]
     Indication: TYPE 2 DIABETES MELLITUS
     Dosage: 1.2 MG, QD
     Route: 065
     Dates: start: 20111122, end: 20111226
  2. RANITIDINE [Suspect]
     Dosage: 150
     Route: 065
  3. METHOTREXATE [Concomitant]
     Dosage: 20 MG
     Route: 065
  4. AMITRIPTYLINE [Concomitant]
     Dosage: 50
     Route: 065
  5. DIHYDROCODEINE [Concomitant]
     Dosage: UNKNOWN
     Route: 065
  6. ETORICOXIB [Concomitant]
     Dosage: 1 TAB, QD
     Route: 065
  7. KAPAKE [Concomitant]
     Dosage: UNKNOWN
     Route: 065
  8. MEBEVERINE [Concomitant]
     Dosage: 1 TAB, TID
     Route: 065
  9. FOLIC ACID [Concomitant]
     Dosage: 5 MG
     Route: 065
  10. RAMIPRIL [Concomitant]
     Dosage: 10 MG, QD
     Route: 065
  11. METFORMIN [Concomitant]
     Dosage: 1000 MG, QD
     Route: 065
  12. GLIMEPIRID [Concomitant]
     Dosage: 2 MG, QD
     Route: 065

REACTIONS (1)
  - Pancreatitis acute [Recovered/Resolved]
